FAERS Safety Report 5446879-6 (Version None)
Quarter: 2007Q3

REPORT INFORMATION
  Report Type: 
  Country: None (occurrence: None)
  Receive Date: 20070907
  Receipt Date: 20070827
  Transmission Date: 20080115
  Serious: Yes (Other)
  Sender: FDA-Public Use
  Company Number: MX-PFIZER INC-2007073249

PATIENT
  Sex: Male
  Weight: 92 kg

DRUGS (1)
  1. CHAMPIX [Suspect]
     Indication: SMOKING CESSATION THERAPY
     Route: 048
     Dates: start: 20070608, end: 20070824

REACTIONS (12)
  - ALANINE AMINOTRANSFERASE INCREASED [None]
  - ASPARTATE AMINOTRANSFERASE INCREASED [None]
  - COLD SWEAT [None]
  - DIARRHOEA [None]
  - DIZZINESS [None]
  - EAR DISCOMFORT [None]
  - FATIGUE [None]
  - HEADACHE [None]
  - HEPATOCELLULAR DAMAGE [None]
  - HYPERTENSION [None]
  - NAUSEA [None]
  - VOMITING [None]
